FAERS Safety Report 5506682-5 (Version None)
Quarter: 2007Q4

REPORT INFORMATION
  Report Type: 
  Country: None (occurrence: None)
  Receive Date: 20071101
  Receipt Date: 20071005
  Transmission Date: 20080405
  Serious: Yes (Life-Threatening, Hospitalization)
  Sender: FDA-Public Use
  Company Number: 60412

PATIENT
  Age: 14 Year
  Sex: Male

DRUGS (1)
  1. IBUPROFEN [Suspect]
     Dosage: 50 G

REACTIONS (9)
  - APNOEA [None]
  - BLOOD LACTIC ACID INCREASED [None]
  - CIRCULATORY COLLAPSE [None]
  - GASTRIC HAEMORRHAGE [None]
  - HYPOTENSION [None]
  - INTENTIONAL OVERDOSE [None]
  - METABOLIC ACIDOSIS [None]
  - PULMONARY HAEMORRHAGE [None]
  - RENAL FAILURE [None]
